FAERS Safety Report 4562128-5 (Version None)
Quarter: 2005Q1

REPORT INFORMATION
  Report Type: 
  Country: None (occurrence: None)
  Receive Date: 20050121
  Receipt Date: 20040907
  Transmission Date: 20050727
  Serious: Yes (Disabling)
  Sender: FDA-Public Use
  Company Number: 200408180

PATIENT
  Age: 46 Year
  Sex: Male

DRUGS (12)
  1. BOTOX [Suspect]
     Indication: ANAL FISSURE
     Dosage: 33 UNITS ONCE IM
     Route: 030
     Dates: start: 20040817
  2. PERCOCET [Concomitant]
  3. LOPERAMIDE HCL [Concomitant]
  4. TOPICAL LIDOCAINE [Concomitant]
  5. METHYLPHENIDATE [Concomitant]
  6. CLONAZEPAM [Concomitant]
  7. MYCELEX [Concomitant]
  8. BACTRIM DS [Concomitant]
  9. IBUPROFEN [Concomitant]
  10. LITHIUM [Concomitant]
  11. DIFLUCAN [Concomitant]
  12. EFFEXOR [Concomitant]

REACTIONS (10)
  - ANAL SPHINCTER ATONY [None]
  - DIARRHOEA [None]
  - DRUG WITHDRAWAL SYNDROME [None]
  - FAECAL INCONTINENCE [None]
  - IMPAIRED HEALING [None]
  - PAIN [None]
  - POST PROCEDURAL DISCHARGE [None]
  - POST PROCEDURAL HAEMORRHAGE [None]
  - PROCTALGIA [None]
  - SCAR PAIN [None]
